FAERS Safety Report 8602042 (Version 2)
Quarter: 2013Q4

REPORT INFORMATION
  Report Type: Spontaneous
  Country: US (occurrence: US)
  Receive Date: 20120607
  Receipt Date: 20131011
  Transmission Date: 20140711
  Serious: Yes (Disabling)
  Sender: FDA-Public Use
  Company Number: US-ASTRAZENECA-2012SE36188

PATIENT
  Age: 38 Year
  Sex: Male
  Weight: 108.9 kg

DRUGS (6)
  1. NEXIUM [Suspect]
     Indication: ULCER
     Route: 048
     Dates: start: 2001, end: 2011
  2. NEXIUM [Suspect]
     Indication: ULCER
     Route: 048
     Dates: start: 20100616
  3. PREVACID OTC [Concomitant]
  4. TUMS [Concomitant]
     Dosage: AS NEEDED
  5. ROLAIDS [Concomitant]
     Dosage: AS NEEDED
  6. ZANTAC [Concomitant]

REACTIONS (3)
  - Foot fracture [Unknown]
  - Osteoporosis [Unknown]
  - Ankle fracture [Unknown]
